FAERS Safety Report 5822292-4 (Version None)
Quarter: 2008Q3

REPORT INFORMATION
  Report Type: 
  Country: None (occurrence: None)
  Receive Date: 20080725
  Receipt Date: 20080424
  Transmission Date: 20090109
  Serious: No
  Sender: FDA-Public Use
  Company Number: US-AMGEN-KDL276336

PATIENT
  Sex: Female
  Weight: 67.2 kg

DRUGS (12)
  1. PROCRIT [Suspect]
     Indication: ANAEMIA
     Dates: start: 20030301
  2. OSCAL [Concomitant]
  3. FUROSEMIDE [Concomitant]
  4. COZAAR [Concomitant]
  5. ASPIRIN [Concomitant]
  6. CARVEDILOL [Concomitant]
  7. NITROGLYCERIN [Concomitant]
  8. LANOXIN [Concomitant]
  9. AMLODIPINE [Concomitant]
  10. LEVOTHYROXINE SODIUM [Concomitant]
  11. VYTORIN [Concomitant]
  12. JANUVIA [Concomitant]

REACTIONS (2)
  - POLYP [None]
  - RENAL DISORDER [None]
